FAERS Safety Report 22342691 (Version 1)
Quarter: 2023Q2

REPORT INFORMATION
  Report Type: Spontaneous
  Country: None (occurrence: CN)
  Receive Date: 20230519
  Receipt Date: 20230519
  Transmission Date: 20230721
  Serious: Yes (Other)
  Sender: FDA-Public Use
  Company Number: CN-Jiangsu Hengrui Medicine Co., Ltd.-2141703

PATIENT
  Age: 48 Year
  Sex: Female

DRUGS (3)
  1. OXALIPLATIN [Suspect]
     Active Substance: OXALIPLATIN
     Indication: Cholangiocarcinoma
  2. FLUOROURACIL [Suspect]
     Active Substance: FLUOROURACIL
  3. LEUCOVORIN CALCIUM [Concomitant]
     Active Substance: LEUCOVORIN CALCIUM

REACTIONS (13)
  - Interstitial lung disease [Recovering/Resolving]
  - Hyperpyrexia [Recovered/Resolved]
  - Nausea [Unknown]
  - Vomiting [Unknown]
  - White blood cell count decreased [Recovered/Resolved]
  - Pyrexia [Recovered/Resolved]
  - Chills [Unknown]
  - Flushing [Unknown]
  - Face oedema [Unknown]
  - Hepatic function abnormal [Recovering/Resolving]
  - Infection [Unknown]
  - Rash erythematous [Recovered/Resolved]
  - Product use in unapproved indication [Unknown]
